FAERS Safety Report 8244862-9 (Version None)
Quarter: 2012Q1

REPORT INFORMATION
  Report Type: 
  Country: None (occurrence: None)
  Receive Date: 20120329
  Receipt Date: 20110701
  Transmission Date: 20120608
  Serious: No
  Sender: FDA-Public Use
  Company Number: US-MYLANLABS-2011S1013708

PATIENT
  Age: 58 Year
  Sex: Male

DRUGS (4)
  1. VICODIN [Concomitant]
  2. CLONAZEPAM [Concomitant]
  3. FENTANYL-100 [Suspect]
     Dosage: Q72
     Route: 062
     Dates: start: 20110630
  4. CELEBREX [Concomitant]

REACTIONS (3)
  - ABNORMAL BEHAVIOUR [None]
  - CONFUSIONAL STATE [None]
  - HYPERHIDROSIS [None]
